FAERS Safety Report 25032196 (Version 1)
Quarter: 2025Q1

REPORT INFORMATION
  Report Type: Spontaneous
  Country: GB (occurrence: GB)
  Receive Date: 20250303
  Receipt Date: 20250303
  Transmission Date: 20250409
  Serious: Yes (Other)
  Sender: CHATTEM
  Company Number: GB-MHRA-TPP39224259C17768403YC1740409499788

PATIENT
  Age: 19 Year
  Sex: Female

DRUGS (3)
  1. FEXOFENADINE [Suspect]
     Active Substance: FEXOFENADINE HYDROCHLORIDE
     Indication: Product used for unknown indication
     Route: 065
     Dates: start: 20240701
  2. FLUTICASONE FUROATE [Concomitant]
     Active Substance: FLUTICASONE FUROATE
     Indication: Product used for unknown indication
     Dosage: USE TWO SPRAYS INTO EACH NOSTRIL ONCE DAILY RED...
     Route: 065
     Dates: start: 20250224
  3. OLOPATADINE [Concomitant]
     Active Substance: OLOPATADINE
     Indication: Product used for unknown indication
     Dosage: APPLY TWICE DAILY FOR MAXIMUM FOUR MONTHS
     Route: 065
     Dates: start: 20250224

REACTIONS (2)
  - Thrombocytopenia [Recovered/Resolved]
  - Contusion [Recovered/Resolved]

NARRATIVE: CASE EVENT DATE: 20240701
